FAERS Safety Report 5480337-8 (Version None)
Quarter: 2007Q4

REPORT INFORMATION
  Report Type: 
  Country: None (occurrence: None)
  Receive Date: 20071009
  Receipt Date: 20070928
  Transmission Date: 20080405
  Serious: Yes (Hospitalization)
  Sender: FDA-Public Use
  Company Number: ZA-AMGEN-UK244727

PATIENT
  Sex: Male

DRUGS (8)
  1. PANITUMUMAB [Suspect]
     Indication: COLORECTAL CANCER
     Route: 042
     Dates: start: 20070831, end: 20070925
  2. GLUCOPHAGE [Concomitant]
     Route: 048
     Dates: start: 20050101
  3. CELEBREX [Concomitant]
     Route: 048
     Dates: start: 20050101
  4. ACETAMINOPHEN W/ PROPOXYPHENE HCL [Concomitant]
     Dates: start: 20070828
  5. LOSEC [Concomitant]
     Route: 048
     Dates: start: 20070912
  6. FLUOROURACIL [Concomitant]
  7. LEUCOVORIN [Concomitant]
  8. OXALIPLATIN [Concomitant]

REACTIONS (1)
  - INTESTINAL OBSTRUCTION [None]
